FAERS Safety Report 6397412-6 (Version None)
Quarter: 2009Q4

REPORT INFORMATION
  Report Type: 
  Country: None (occurrence: None)
  Receive Date: 20091012
  Receipt Date: 20090929
  Transmission Date: 20100525
  Serious: Yes (Other)
  Sender: FDA-Public Use
  Company Number: PHHY2009DE42125

PATIENT
  Sex: Female

DRUGS (9)
  1. DIOVAN [Suspect]
     Indication: HYPERTENSION
     Dosage: 160 MG, QD
     Dates: start: 20090101, end: 20090101
  2. DIOVAN [Suspect]
     Dosage: 320 MG, QD
     Dates: start: 20090101, end: 20090929
  3. RASILEZ [Suspect]
     Indication: HYPERTENSION
     Dosage: 150 MG, QD
     Dates: start: 20090101, end: 20090101
  4. RASILEZ [Suspect]
     Dosage: 300 MG, QD
     Dates: start: 20090101, end: 20090101
  5. RASILEZ HCT [Suspect]
     Indication: HYPERTENSION
     Dosage: 1 DF, QD
     Dates: start: 20090101, end: 20090929
  6. ASPIRIN [Concomitant]
     Indication: EMBOLISM
     Dosage: 100 MG/DAY
     Dates: start: 19820101
  7. L-THYROXIN [Concomitant]
     Indication: EMBOLISM
     Dosage: 150 U/D
     Dates: start: 20030101
  8. TRUSOPT [Concomitant]
     Indication: GLAUCOMA
     Dosage: 2 DROPS/DAY
     Dates: start: 19890101
  9. GANFORT [Concomitant]
     Dosage: 2 DROPS/DAY
     Dates: start: 20090101

REACTIONS (2)
  - BLOOD PRESSURE FLUCTUATION [None]
  - POLYNEUROPATHY [None]
